FAERS Safety Report 12285480 (Version 4)
Quarter: 2016Q3

REPORT INFORMATION
  Report Type: Spontaneous
  Country: IT (occurrence: IT)
  Receive Date: 20160420
  Receipt Date: 20160729
  Transmission Date: 20161109
  Serious: Yes (Hospitalization, Other)
  Sender: FDA-Public Use
  Company Number: IT-AMGEN-ITASP2016048388

PATIENT
  Age: 65 Year
  Sex: Female

DRUGS (2)
  1. XGEVA [Suspect]
     Active Substance: DENOSUMAB
     Indication: METASTASES TO BONE
     Dosage: UNK
     Route: 058
     Dates: start: 20140303
  2. CALCIUM [Concomitant]
     Active Substance: CALCIUM

REACTIONS (2)
  - Osteonecrosis of jaw [Unknown]
  - Tooth extraction [Unknown]

NARRATIVE: CASE EVENT DATE: 201509
